FAERS Safety Report 9456420 (Version 1)
Quarter: 2013Q3

REPORT INFORMATION
  Report Type: Spontaneous
  Country: US (occurrence: US)
  Receive Date: 20130813
  Receipt Date: 20130813
  Transmission Date: 20140515
  Serious: Yes (Hospitalization)
  Sender: FDA-Public Use
  Company Number: US-PERRIGO-13US008321

PATIENT
  Age: 12 Year
  Sex: Female
  Weight: 38.5 kg

DRUGS (4)
  1. IBUPROFEN 200 MG 604 [Suspect]
     Indication: MUSCULOSKELETAL STIFFNESS
     Dosage: 600MG
     Route: 048
  2. IBUPROFEN 200 MG 604 [Suspect]
     Dosage: 200 MG, QID
  3. ACETAMINOPHEN 650MG ER 544 [Suspect]
     Indication: MUSCULOSKELETAL STIFFNESS
     Route: 048
  4. MEPERIDINE [Suspect]
     Indication: MUSCLE SPASMS
     Route: 030

REACTIONS (2)
  - Renal impairment [Recovered/Resolved]
  - Flank pain [Recovered/Resolved]
